FAERS Safety Report 23173829 (Version 2)
Quarter: 2024Q2

REPORT INFORMATION
  Report Type: Spontaneous
  Country: FR (occurrence: FR)
  Receive Date: 20231111
  Receipt Date: 20240524
  Transmission Date: 20240716
  Serious: Yes (Other)
  Sender: FDA-Public Use
  Company Number: FR-UCBSA-2023049653

PATIENT
  Age: 63 Year
  Sex: Male
  Weight: 90 kg

DRUGS (2)
  1. BIMZELX [Suspect]
     Active Substance: BIMEKIZUMAB-BKZX
     Indication: Psoriasis
     Dosage: 320 MILLIGRAM, UNK
     Route: 058
     Dates: start: 20230808, end: 20230809
  2. BIMZELX [Suspect]
     Active Substance: BIMEKIZUMAB-BKZX
     Dosage: UNK
     Route: 058
     Dates: start: 2023, end: 20231003

REACTIONS (2)
  - Toxic skin eruption [Recovered/Resolved]
  - Eczema [Recovered/Resolved]

NARRATIVE: CASE EVENT DATE: 20230906
